FAERS Safety Report 7519828-4 (Version None)
Quarter: 2011Q2

REPORT INFORMATION
  Report Type: 
  Country: None (occurrence: None)
  Receive Date: 20110602
  Receipt Date: 20110531
  Transmission Date: 20111010
  Serious: Yes (Life-Threatening, Hospitalization, Other)
  Sender: FDA-Public Use
  Company Number: US-PFIZER INC-2011104443

PATIENT
  Age: 54 Year
  Sex: Male

DRUGS (9)
  1. IMIPENEM AND CILASTATIN SODIUM [Concomitant]
     Indication: INFECTION
     Route: 042
  2. TACROLIMUS [Suspect]
     Indication: IMMUNOSUPPRESSANT DRUG THERAPY
  3. ESOMEPRAZOLE [Concomitant]
     Dosage: UNK
  4. LINEZOLID [Interacting]
     Indication: INFECTION
     Dosage: UNK
     Route: 042
  5. SERTRALINE HYDROCHLORIDE [Interacting]
  6. METOPROLOL [Concomitant]
     Dosage: UNK
  7. COTRIM [Concomitant]
     Dosage: UNK
  8. DOCUSATE [Concomitant]
     Dosage: UNK
  9. CASPOFUNGIN [Concomitant]
     Indication: INFECTION
     Route: 042

REACTIONS (10)
  - SEROTONIN SYNDROME [None]
  - FALL [None]
  - COORDINATION ABNORMAL [None]
  - HALLUCINATION, VISUAL [None]
  - CONFUSIONAL STATE [None]
  - RESTLESSNESS [None]
  - TREMOR [None]
  - DRUG INTERACTION [None]
  - MUSCLE CONTRACTIONS INVOLUNTARY [None]
  - AGITATION [None]
